FAERS Safety Report 22644241 (Version 1)
Quarter: 2023Q2

REPORT INFORMATION
  Report Type: Report from Study
  Country: US (occurrence: US)
  Receive Date: 20230627
  Receipt Date: 20230627
  Transmission Date: 20230722
  Serious: No
  Sender: FDA-Public Use
  Company Number: US-002147023-NVSC2023US143935

PATIENT
  Age: 87 Year
  Sex: Female

DRUGS (1)
  1. LEQVIO [Suspect]
     Active Substance: INCLISIRAN SODIUM
     Indication: Product used for unknown indication
     Dosage: UNK
     Route: 058
     Dates: start: 20230101

REACTIONS (9)
  - Fall [Unknown]
  - Neck pain [Unknown]
  - Nerve compression [Unknown]
  - Head discomfort [Unknown]
  - Limb discomfort [Unknown]
  - Pain [Recovering/Resolving]
  - Migraine [Unknown]
  - Urinary tract infection [Unknown]
  - Arthralgia [Unknown]

NARRATIVE: CASE EVENT DATE: 20230101
